FAERS Safety Report 19495077 (Version 1)
Quarter: 2021Q3

REPORT INFORMATION
  Report Type: Spontaneous
  Country: ZA (occurrence: ZA)
  Receive Date: 20210706
  Receipt Date: 20210706
  Transmission Date: 20211014
  Serious: Yes (Congenital Anomaly, Other)
  Sender: FDA-Public Use
  Company Number: ZA-CIPLA LTD.-2021ZA04709

PATIENT

DRUGS (1)
  1. WARFARIN [Suspect]
     Active Substance: WARFARIN
     Dosage: UNK
     Route: 064

REACTIONS (4)
  - Anencephaly [Unknown]
  - Meningocele [Unknown]
  - Spinal cord haemorrhage [Unknown]
  - Foetal exposure during pregnancy [Unknown]
